FAERS Safety Report 19155674 (Version 1)
Quarter: 2021Q2

REPORT INFORMATION
  Report Type: Spontaneous
  Country: US (occurrence: US)
  Receive Date: 20210420
  Receipt Date: 20210420
  Transmission Date: 20210717
  Serious: No
  Sender: FDA-Public Use
  Company Number: US-GLAXOSMITHKLINE-USCH2021019400

PATIENT
  Age: 71 Year
  Sex: Female

DRUGS (3)
  1. EQUATE NICOTINE [Suspect]
     Active Substance: NICOTINE
     Indication: SMOKING CESSATION THERAPY
  2. NICODERM CQ [Suspect]
     Active Substance: NICOTINE
     Indication: SMOKING CESSATION THERAPY
  3. EQUATE NICOTINE [Suspect]
     Active Substance: NICOTINE

REACTIONS (3)
  - Application site pruritus [Recovered/Resolved]
  - Wrong technique in product usage process [Unknown]
  - Application site erythema [Recovered/Resolved]
